FAERS Safety Report 15304907 (Version 1)
Quarter: 2018Q3

REPORT INFORMATION
  Report Type: Spontaneous
  Country: FR (occurrence: FR)
  Receive Date: 20180822
  Receipt Date: 20180822
  Transmission Date: 20181010
  Serious: Yes (Hospitalization)
  Sender: FDA-Public Use
  Company Number: FR-TEVA-2018-FR-945294

PATIENT
  Age: 56 Year
  Sex: Male
  Weight: 70 kg

DRUGS (3)
  1. DIAZEPAM. [Suspect]
     Active Substance: DIAZEPAM
     Indication: SUICIDE ATTEMPT
     Route: 048
     Dates: start: 20180702, end: 20180702
  2. LOXAPAC 25 MG, COMPRIM? PELLICUL? [Suspect]
     Active Substance: LOXAPINE SUCCINATE
     Indication: SUICIDE ATTEMPT
     Dosage: 750 MG
     Route: 048
     Dates: start: 20180702, end: 20180702
  3. LOXEN L P 50 MG, G?LULE ? LIB?RATION PROLONG?E [Suspect]
     Active Substance: NICARDIPINE HYDROCHLORIDE
     Indication: SUICIDE ATTEMPT
     Dosage: 2.5 GRAM
     Route: 048
     Dates: start: 20180702, end: 20180702

REACTIONS (3)
  - Cardiogenic shock [Recovered/Resolved]
  - Confusional state [Recovered/Resolved]
  - Vasoplegia syndrome [Recovered/Resolved]

NARRATIVE: CASE EVENT DATE: 20180702
